FAERS Safety Report 5620325-1 (Version None)
Quarter: 2008Q1

REPORT INFORMATION
  Report Type: 
  Country: None (occurrence: None)
  Receive Date: 20080208
  Receipt Date: 20080130
  Transmission Date: 20080703
  Serious: Yes (Hospitalization, Other)
  Sender: FDA-Public Use
  Company Number: ES-ELI_LILLY_AND_COMPANY-ES200801006967

PATIENT
  Age: 69 Year
  Sex: Female

DRUGS (8)
  1. FORTEO [Suspect]
     Dosage: 20 UG, DAILY (1/D)
     Route: 058
     Dates: start: 20061001
  2. SINTROM [Concomitant]
  3. ACOVIL [Concomitant]
  4. ULCERAL [Concomitant]
     Indication: GASTRIC DISORDER
  5. ADOLONTA [Concomitant]
  6. DILUTOL [Concomitant]
  7. CALCIUM GLUCONATE [Concomitant]
     Indication: OSTEOPOROSIS
  8. DOLOGESIC [Concomitant]

REACTIONS (3)
  - HAEMORRHAGE [None]
  - INTESTINAL ANGINA [None]
  - THROMBOSIS [None]
